FAERS Safety Report 22356474 (Version 1)
Quarter: 2023Q2

REPORT INFORMATION
  Report Type: Spontaneous
  Country: US (occurrence: None)
  Receive Date: 20230523
  Receipt Date: 20230523
  Transmission Date: 20230722
  Serious: No
  Sender: FDA-Public Use
  Company Number: None

PATIENT
  Age: 43 Year
  Sex: Female
  Weight: 74.25 kg

DRUGS (1)
  1. GAMUNEX-C [Suspect]
     Active Substance: HUMAN IMMUNOGLOBULIN G
     Indication: Selective IgG subclass deficiency
     Dosage: OTHER FREQUENCY : Q 28 DAYS;?
     Route: 042
     Dates: start: 20230519

REACTIONS (3)
  - Infusion related reaction [None]
  - Hypotension [None]
  - Hypoaesthesia oral [None]

NARRATIVE: CASE EVENT DATE: 20230519
